FAERS Safety Report 9855251 (Version 1)
Quarter: 2013Q4

REPORT INFORMATION
  Report Type: Spontaneous
  Country: US (occurrence: None)
  Receive Date: 20131226
  Receipt Date: 20131226
  Transmission Date: 20140711
  Serious: Yes (Other)
  Sender: FDA-Public Use
  Company Number: PHEH2013US012371

PATIENT
  Age: 49 Year
  Sex: Female
  Weight: 51.26 kg

DRUGS (5)
  1. GILENYA (FINGOLIMOD) CAPSULE, 0.5 MG [Suspect]
     Indication: RELAPSING-REMITTING MULTIPLE SCLEROSIS
     Route: 048
     Dates: start: 201208, end: 201304
  2. SIMVASTATIN (SIMVASTATIN) [Concomitant]
  3. PREMARIN (ESTROGENS CONJUGATED) [Concomitant]
  4. FOLIC ACID (FOLIC ACID) [Concomitant]
  5. CELEBREX (CELECOXIB) [Concomitant]

REACTIONS (1)
  - Leukopenia [None]
